FAERS Safety Report 21503690 (Version 1)
Quarter: 2022Q4

REPORT INFORMATION
  Report Type: Spontaneous
  Country: US (occurrence: None)
  Receive Date: 20221025
  Receipt Date: 20221025
  Transmission Date: 20230113
  Serious: Yes (Hospitalization)
  Sender: FDA-Public Use
  Company Number: None

PATIENT
  Age: 70 Year
  Sex: Female
  Weight: 58.5 kg

DRUGS (1)
  1. POLYETHYLENE GLYCOL 3350 [Suspect]
     Active Substance: POLYETHYLENE GLYCOL 3350
     Indication: Bowel preparation
     Dosage: OTHER FREQUENCY : ONCE;?
     Route: 048
     Dates: start: 20221019, end: 20221019

REACTIONS (14)
  - Renal pain [None]
  - Burning sensation [None]
  - Pruritus [None]
  - Rash [None]
  - Rash [None]
  - Erythema [None]
  - Malaise [None]
  - Muscle spasms [None]
  - Tremor [None]
  - Dysphonia [None]
  - Back pain [None]
  - Diarrhoea [None]
  - Vomiting [None]
  - Dyspnoea [None]

NARRATIVE: CASE EVENT DATE: 20221019
